FAERS Safety Report 4947046-2 (Version None)
Quarter: 2006Q1

REPORT INFORMATION
  Report Type: 
  Country: None (occurrence: None)
  Receive Date: 20060314
  Receipt Date: 20060302
  Transmission Date: 20060701
  Serious: Yes (Hospitalization, Other)
  Sender: FDA-Public Use
  Company Number: 2006RL000006

PATIENT
  Age: 60 Year
  Sex: Male
  Weight: 104.3273 kg

DRUGS (1)
  1. ANTARA (MICRONIZED) [Suspect]
     Indication: BLOOD CHOLESTEROL INCREASED
     Dosage: 87 MG; QD; PO
     Route: 048
     Dates: start: 20050520, end: 20051007

REACTIONS (10)
  - ALANINE AMINOTRANSFERASE INCREASED [None]
  - ASPARTATE AMINOTRANSFERASE INCREASED [None]
  - BILE DUCT OBSTRUCTION [None]
  - INFECTION [None]
  - METASTASES TO PANCREAS [None]
  - OCULAR ICTERUS [None]
  - PANCREATIC CARCINOMA [None]
  - PROSTATE CANCER [None]
  - STENT OCCLUSION [None]
  - YELLOW SKIN [None]
